FAERS Safety Report 16755655 (Version 19)
Quarter: 2023Q2

REPORT INFORMATION
  Report Type: Report from Study
  Country: DE (occurrence: DE)
  Receive Date: 20190829
  Receipt Date: 20230630
  Transmission Date: 20230722
  Serious: Yes (Other)
  Sender: FDA-Public Use
  Company Number: DE-002147023-PHHY2019DE187306

PATIENT
  Sex: Female
  Weight: 70.7 kg

DRUGS (5)
  1. EXEMESTANE [Suspect]
     Active Substance: EXEMESTANE
     Indication: Breast cancer metastatic
     Dosage: 25 MG, 1X/DAY
     Route: 048
     Dates: start: 20190723
  2. KISQALI [Suspect]
     Active Substance: RIBOCICLIB
     Indication: Breast cancer metastatic
     Dosage: 600MG DAILY, 21 DAYS ON/7 DAYS OFF
     Route: 048
     Dates: start: 20190723, end: 20230313
  3. KISQALI [Suspect]
     Active Substance: RIBOCICLIB
     Dosage: 600MG DAILY, 21 DAYS ON/7 DAYS OFF
     Route: 048
     Dates: start: 20230321, end: 20230417
  4. KISQALI [Suspect]
     Active Substance: RIBOCICLIB
     Dosage: 400MG DAILY, 21 DAYS ON/7 DAYS OFF
     Route: 048
     Dates: start: 20230502
  5. LISINOPRIL [Concomitant]
     Active Substance: LISINOPRIL
     Indication: Hypertension
     Dosage: 10 MG, 1X/DAY
     Route: 048
     Dates: start: 20161109, end: 20190916

REACTIONS (13)
  - Leukopenia [Recovering/Resolving]
  - Anaemia [Recovered/Resolved]
  - Hypotension [Recovered/Resolved]
  - Rash [Recovered/Resolved]
  - Vertigo [Not Recovered/Not Resolved]
  - Vitiligo [Not Recovered/Not Resolved]
  - Abdominal pain [Recovered/Resolved]
  - Pigmentation disorder [Recovered/Resolved]
  - Muscle spasms [Not Recovered/Not Resolved]
  - Dyspnoea [Recovered/Resolved]
  - Balance disorder [Not Recovered/Not Resolved]
  - Cough [Recovered/Resolved]
  - Photopsia [Not Recovered/Not Resolved]

NARRATIVE: CASE EVENT DATE: 20190806
